FAERS Safety Report 20697826 (Version 1)
Quarter: 2022Q2

REPORT INFORMATION
  Report Type: Report from Study
  Country: US (occurrence: US)
  Receive Date: 20220411
  Receipt Date: 20220411
  Transmission Date: 20220721
  Serious: Yes (Other)
  Sender: FDA-Public Use
  Company Number: US-ABBVIE-22K-163-4353332-00

PATIENT
  Sex: Female

DRUGS (1)
  1. RINVOQ [Suspect]
     Active Substance: UPADACITINIB
     Indication: Rheumatoid arthritis
     Route: 048

REACTIONS (11)
  - Peripheral artery occlusion [Unknown]
  - Varicose vein [Unknown]
  - Neuropathy peripheral [Unknown]
  - Oedema [Unknown]
  - Urinary incontinence [Unknown]
  - Chronic obstructive pulmonary disease [Unknown]
  - Bronchitis [Recovered/Resolved]
  - Fibromyalgia [Unknown]
  - Intervertebral disc degeneration [Unknown]
  - Depression [Unknown]
  - Cellulitis [Recovered/Resolved]
